FAERS Safety Report 6148525-5 (Version None)
Quarter: 2009Q2

REPORT INFORMATION
  Report Type: 
  Country: None (occurrence: None)
  Receive Date: 20090408
  Receipt Date: 20090325
  Transmission Date: 20091009
  Serious: Yes (Other)
  Sender: FDA-Public Use
  Company Number: GB-ROCHE-624395

PATIENT
  Age: 51 Year
  Sex: Female

DRUGS (8)
  1. ORLISTAT [Suspect]
     Indication: DRUG USE FOR UNKNOWN INDICATION
     Route: 065
  2. ATORVASTATIN [Concomitant]
  3. CARVEDILOL [Concomitant]
  4. ENALAPRIL [Concomitant]
  5. FRUSEMIDE [Concomitant]
  6. GLICLAZIDE [Concomitant]
  7. METFORMIN HCL [Concomitant]
  8. WARFARIN [Concomitant]

REACTIONS (5)
  - DIARRHOEA [None]
  - GLOMERULAR FILTRATION RATE ABNORMAL [None]
  - HYPOTENSION [None]
  - RENAL FAILURE ACUTE [None]
  - RENAL IMPAIRMENT [None]
